FAERS Safety Report 18200225 (Version 3)
Quarter: 2021Q3

REPORT INFORMATION
  Report Type: Report from Study
  Country: CO (occurrence: CO)
  Receive Date: 20200826
  Receipt Date: 20210817
  Transmission Date: 20211014
  Serious: Yes (Other)
  Sender: FDA-Public Use
  Company Number: NVSC2020CO228597

PATIENT
  Age: 13 Year
  Sex: Male
  Weight: 57 kg

DRUGS (7)
  1. RELESTAT [Concomitant]
     Active Substance: EPINASTINE HYDROCHLORIDE
     Indication: CONJUNCTIVITIS
     Dosage: 1 DRP, PRN, STARTS 2 YEARS AGO
     Route: 031
  2. XOLAIR [Suspect]
     Active Substance: OMALIZUMAB
     Indication: ASTHMA
     Dosage: 450 MG, QMO
     Route: 058
     Dates: start: 20190731
  3. XOLAIR [Suspect]
     Active Substance: OMALIZUMAB
     Dosage: 450 MG, QMO
     Route: 058
     Dates: start: 20190805
  4. FLUTICASONE. [Concomitant]
     Active Substance: FLUTICASONE
     Indication: RHINITIS
     Dosage: UNK, QD, 1 PUFF IN EACH NOSTRIL, STARTS 3 YEARS AGO
     Route: 045
  5. MONTELUKAST [Suspect]
     Active Substance: MONTELUKAST SODIUM
     Indication: ASTHMA
     Dosage: 5 MG, QD, 2 YEARS AGO
     Route: 048
  6. SALBUTAMOL [Suspect]
     Active Substance: ALBUTEROL
     Indication: ASTHMA
     Dosage: UNK, PRN, START 3 YEARS AGO, 2 OR 3 PUFF
     Route: 065
  7. BUDESONIDE. [Concomitant]
     Active Substance: BUDESONIDE
     Indication: ASTHMA
     Dosage: UNK, Q12H, 2 PUFF, STARTS 3 YEARS AGO
     Route: 048

REACTIONS (12)
  - Dyspnoea [Unknown]
  - Crying [Not Recovered/Not Resolved]
  - Nasal turbinate hypertrophy [Unknown]
  - Malaise [Not Recovered/Not Resolved]
  - Headache [Recovered/Resolved]
  - Product dose omission issue [Unknown]
  - Eating disorder [Not Recovered/Not Resolved]
  - COVID-19 [Unknown]
  - Pain [Not Recovered/Not Resolved]
  - Decreased appetite [Not Recovered/Not Resolved]
  - Pulmonary pain [Unknown]
  - Neck pain [Not Recovered/Not Resolved]

NARRATIVE: CASE EVENT DATE: 20201212
